FAERS Safety Report 24800216 (Version 2)
Quarter: 2025Q1

REPORT INFORMATION
  Report Type: Spontaneous
  Country: US (occurrence: US)
  Receive Date: 20250102
  Receipt Date: 20250109
  Transmission Date: 20250409
  Serious: Yes (Life-Threatening, Other)
  Sender: PFIZER
  Company Number: US-PFIZER INC-PV202400170678

PATIENT

DRUGS (2)
  1. PROPOFOL [Suspect]
     Active Substance: PROPOFOL
  2. REMIFENTANIL [Suspect]
     Active Substance: REMIFENTANIL

REACTIONS (1)
  - Serotonin syndrome [Unknown]
